FAERS Safety Report 21916474 (Version 1)
Quarter: 2023Q1

REPORT INFORMATION
  Report Type: Spontaneous
  Country: ZA (occurrence: ZA)
  Receive Date: 20230126
  Receipt Date: 20230126
  Transmission Date: 20230417
  Serious: Yes (Other)
  Sender: FDA-Public Use
  Company Number: ZA-PFIZER INC-PV202200056412

PATIENT
  Age: 73 Year
  Sex: Male

DRUGS (9)
  1. METHOTREXATE SODIUM [Suspect]
     Active Substance: METHOTREXATE SODIUM
     Dosage: UNK
     Dates: start: 20170209
  2. XELJANZ [Suspect]
     Active Substance: TOFACITINIB CITRATE
     Dosage: 5 MG
     Dates: start: 202208, end: 202210
  3. XELJANZ [Suspect]
     Active Substance: TOFACITINIB CITRATE
     Dosage: 5 MG, 2X/DAY
     Route: 048
     Dates: start: 20220903
  4. CHLOROQUINE [Concomitant]
     Active Substance: CHLOROQUINE
     Dosage: UNK
     Dates: start: 20180208, end: 20180825
  5. SALAZOPYRINE [Concomitant]
     Active Substance: SULFASALAZINE
     Dosage: UNK
     Dates: start: 20180214, end: 20181018
  6. ARCOXIA [Concomitant]
     Active Substance: ETORICOXIB
     Dosage: UNK
     Dates: start: 20170223
  7. ARCOXIA [Concomitant]
     Active Substance: ETORICOXIB
     Dosage: 90 MG
     Dates: start: 202002
  8. SIMPONI [Concomitant]
     Active Substance: GOLIMUMAB
     Dosage: UNK
     Dates: start: 20181212, end: 20200205
  9. HUMIRA [Concomitant]
     Active Substance: ADALIMUMAB
     Dosage: UNK

REACTIONS (2)
  - Knee operation [Unknown]
  - Condition aggravated [Unknown]
